FAERS Safety Report 5281291-4 (Version None)
Quarter: 2007Q1

REPORT INFORMATION
  Report Type: 
  Country: None (occurrence: None)
  Receive Date: 20061221
  Receipt Date: 20061004
  Transmission Date: 20070707
  Serious: No
  Sender: FDA-Public Use
  Company Number: SP00993

PATIENT
  Age: 27 Year
  Sex: Male

DRUGS (1)
  1. XIFAXAN [Suspect]
     Indication: OVERGROWTH BACTERIAL
     Dosage: TWO TABLETS (400MG) / TID (200 MG), ORAL
     Route: 048
     Dates: start: 20061003

REACTIONS (5)
  - ABDOMINAL DISTENSION [None]
  - DECREASED APPETITE [None]
  - DRY MOUTH [None]
  - HEADACHE [None]
  - NAUSEA [None]
